FAERS Safety Report 4615988-3 (Version None)
Quarter: 2005Q1

REPORT INFORMATION
  Report Type: 
  Country: None (occurrence: None)
  Receive Date: 20050323
  Receipt Date: 20050311
  Transmission Date: 20050727
  Serious: Yes (Hospitalization)
  Sender: FDA-Public Use
  Company Number: GB-JNJFOC-20050303187

PATIENT
  Sex: Female
  Weight: 88 kg

DRUGS (12)
  1. REMICADE [Suspect]
     Indication: RHEUMATOID ARTHRITIS
     Route: 042
  2. METHOTREXATE [Concomitant]
  3. PREDNISOLONE [Concomitant]
  4. VOLTAROL [Concomitant]
  5. CO-PROXAMOL [Concomitant]
  6. CO-PROXAMOL [Concomitant]
  7. TEMAZEPAM [Concomitant]
  8. BENDROFLUAZIDE [Concomitant]
  9. DIDRONEL [Concomitant]
  10. MISOPROSTOL [Concomitant]
  11. OXYBUTYNIN [Concomitant]
  12. LANSOPRAZOLE [Concomitant]

REACTIONS (2)
  - ATRIAL FIBRILLATION [None]
  - VENTRICULAR EXTRASYSTOLES [None]
